FAERS Safety Report 15372539 (Version 2)
Quarter: 2018Q3

REPORT INFORMATION
  Report Type: Report from Study
  Country: CA (occurrence: CA)
  Receive Date: 20180911
  Receipt Date: 20180921
  Transmission Date: 20181010
  Serious: Yes (Hospitalization)
  Sender: FDA-Public Use
  Company Number: CA-BIOGEN-2018BI00626570

PATIENT
  Age: 47 Year
  Sex: Female
  Weight: 88 kg

DRUGS (16)
  1. VITAMIN D [Concomitant]
     Active Substance: CHOLECALCIFEROL
     Indication: ROUTINE HEALTH MAINTENANCE
     Route: 048
     Dates: start: 201508
  2. EPA [Concomitant]
     Indication: ROUTINE HEALTH MAINTENANCE
     Dosage: 1 CAPSULE
     Route: 048
     Dates: start: 201508
  3. LECITHIN [Concomitant]
     Active Substance: LECITHIN
     Indication: ROUTINE HEALTH MAINTENANCE
     Route: 048
     Dates: start: 201508
  4. TECFIDERA [Suspect]
     Active Substance: DIMETHYL FUMARATE
     Indication: MULTIPLE SCLEROSIS
     Route: 048
     Dates: start: 20160928, end: 20161011
  5. TECFIDERA [Suspect]
     Active Substance: DIMETHYL FUMARATE
     Dosage: 120 MG AT A.M. AND 240 MG AT P.M.
     Route: 048
     Dates: start: 20161026, end: 20161108
  6. TECFIDERA [Suspect]
     Active Substance: DIMETHYL FUMARATE
     Route: 048
     Dates: start: 20161109
  7. KELP [Concomitant]
     Active Substance: KELP
     Indication: ROUTINE HEALTH MAINTENANCE
     Route: 048
     Dates: start: 201511
  8. VITAMIN K2 [Concomitant]
     Active Substance: MENAQUINONE 6
     Indication: ROUTINE HEALTH MAINTENANCE
     Route: 048
     Dates: start: 201508
  9. VITAMIN D3 [Concomitant]
     Active Substance: CHOLECALCIFEROL
     Indication: ROUTINE HEALTH MAINTENANCE
     Route: 048
     Dates: start: 201508
  10. MAGNESIUM CITRATE. [Concomitant]
     Active Substance: MAGNESIUM CITRATE
     Indication: ROUTINE HEALTH MAINTENANCE
     Route: 048
     Dates: start: 201508
  11. VITAMIN B12 [Concomitant]
     Active Substance: CYANOCOBALAMIN
     Indication: ROUTINE HEALTH MAINTENANCE
     Route: 060
     Dates: start: 201508
  12. IRON [Concomitant]
     Active Substance: IRON
     Indication: ROUTINE HEALTH MAINTENANCE
     Route: 048
     Dates: start: 201508
  13. LYSINE [Concomitant]
     Active Substance: LYSINE
     Indication: ROUTINE HEALTH MAINTENANCE
     Dosage: 1?2
     Route: 048
     Dates: start: 2006
  14. TECFIDERA [Suspect]
     Active Substance: DIMETHYL FUMARATE
     Route: 048
     Dates: start: 20161012, end: 20161025
  15. VITAMIN K+D [Concomitant]
     Indication: ROUTINE HEALTH MAINTENANCE
     Dosage: 120?MCG/1000?IU
     Route: 048
     Dates: start: 201508
  16. VITAMIN C [Concomitant]
     Active Substance: ASCORBIC ACID
     Indication: ROUTINE HEALTH MAINTENANCE
     Route: 048
     Dates: start: 2014

REACTIONS (1)
  - Papillary thyroid cancer [Recovered/Resolved]

NARRATIVE: CASE EVENT DATE: 20180626
